FAERS Safety Report 7001275-5 (Version None)
Quarter: 2010Q3

REPORT INFORMATION
  Report Type: 
  Country: None (occurrence: None)
  Receive Date: 20100916
  Receipt Date: 20100908
  Transmission Date: 20110219
  Serious: Yes (Other)
  Sender: FDA-Public Use
  Company Number: DSA_43902_2010

PATIENT
  Sex: Male

DRUGS (1)
  1. XENAZINE [Suspect]
     Indication: HUNTINGTON'S DISEASE
     Dosage: (25 MG BID ORAL)
     Route: 048
     Dates: start: 20100101

REACTIONS (6)
  - ABDOMINAL DISTENSION [None]
  - CARDIAC FLUTTER [None]
  - DIZZINESS POSTURAL [None]
  - DYSKINESIA [None]
  - MUSCULOSKELETAL STIFFNESS [None]
  - PAIN [None]
